FAERS Safety Report 20218231 (Version 1)
Quarter: 2021Q4

REPORT INFORMATION
  Report Type: Report from Study
  Country: US (occurrence: US)
  Receive Date: 20211222
  Receipt Date: 20211222
  Transmission Date: 20220303
  Serious: Yes (Death, Hospitalization)
  Sender: FDA-Public Use
  Company Number: US-BAYER-2021A259527

PATIENT
  Age: 69 Year
  Sex: Male

DRUGS (1)
  1. XOFIGO [Suspect]
     Active Substance: RADIUM RA-223 DICHLORIDE
     Indication: Hormone-refractory prostate cancer
     Dosage: 88.7UCI
     Dates: start: 20211028, end: 20211028

REACTIONS (5)
  - Death [Fatal]
  - Hospitalisation [Recovering/Resolving]
  - Malaise [Unknown]
  - Fatigue [None]
  - Food refusal [None]

NARRATIVE: CASE EVENT DATE: 20211117
